FAERS Safety Report 5850031-X (Version None)
Quarter: 2008Q3

REPORT INFORMATION
  Report Type: 
  Country: None (occurrence: None)
  Receive Date: 20080731
  Receipt Date: 20080407
  Transmission Date: 20090109
  Serious: No
  Sender: FDA-Public Use
  Company Number: US200804001803

PATIENT
  Sex: Male

DRUGS (5)
  1. BYETTA [Suspect]
     Indication: INSULIN-REQUIRING TYPE 2 DIABETES MELLITUS
     Dosage: 5 UG, SUBCUTANEOUS; 10 UG, 2/D, SUBCUTANEOUS; 20 UG, OTHER, SUBCUTANEOUS
     Route: 058
     Dates: start: 20080101, end: 20080301
  2. BYETTA [Suspect]
     Indication: INSULIN-REQUIRING TYPE 2 DIABETES MELLITUS
     Dosage: 5 UG, SUBCUTANEOUS; 10 UG, 2/D, SUBCUTANEOUS; 20 UG, OTHER, SUBCUTANEOUS
     Route: 058
     Dates: start: 20080407, end: 20080407
  3. BYETTA [Suspect]
     Indication: INSULIN-REQUIRING TYPE 2 DIABETES MELLITUS
     Dosage: 5 UG, SUBCUTANEOUS; 10 UG, 2/D, SUBCUTANEOUS; 20 UG, OTHER, SUBCUTANEOUS
     Route: 058
     Dates: start: 20080301
  4. NOVOLIN N [Concomitant]
  5. NOVOLIN R [Concomitant]

REACTIONS (2)
  - BLOOD GLUCOSE INCREASED [None]
  - INCORRECT DOSE ADMINISTERED [None]
